FAERS Safety Report 5536647-9 (Version None)
Quarter: 2007Q4

REPORT INFORMATION
  Report Type: 
  Country: None (occurrence: None)
  Receive Date: 20071206
  Receipt Date: 20070725
  Transmission Date: 20080405
  Serious: Yes (Other)
  Sender: FDA-Public Use
  Company Number: US-AMGEN-STX233116

PATIENT
  Sex: Male

DRUGS (7)
  1. ENBREL [Suspect]
     Indication: PSORIASIS
     Route: 058
     Dates: start: 20050519, end: 20070621
  2. TARKA [Concomitant]
  3. TOPROL-XL [Concomitant]
  4. DIURETICS [Concomitant]
  5. ASPIRIN [Concomitant]
  6. CENTRUM [Concomitant]
  7. LIPITOR [Concomitant]

REACTIONS (1)
  - CEREBRAL ISCHAEMIA [None]
